FAERS Safety Report 7360035-6 (Version None)
Quarter: 2011Q1

REPORT INFORMATION
  Report Type: 
  Country: None (occurrence: None)
  Receive Date: 20110317
  Receipt Date: 20110309
  Transmission Date: 20110831
  Serious: Yes (Life-Threatening, Hospitalization, Other)
  Sender: FDA-Public Use
  Company Number: US-GENENTECH-313483

PATIENT
  Sex: Female
  Weight: 107.48 kg

DRUGS (20)
  1. NOVOLOG [Concomitant]
     Indication: DIABETES MELLITUS
     Dosage: UNK
     Route: 058
     Dates: start: 20100301
  2. PREDNISONE TAB [Concomitant]
     Indication: ASTHMA
     Dosage: 40 MG, QD
     Route: 048
     Dates: start: 19910101
  3. XOLAIR [Suspect]
     Indication: ASTHMA
     Dosage: 225 MG, Q2W
     Route: 058
     Dates: start: 20110204, end: 20110204
  4. LISINOPRIL [Concomitant]
     Indication: HYPERTENSION
     Dosage: 10 MG, BID
     Route: 048
     Dates: start: 20100301
  5. COUMADIN [Concomitant]
     Indication: ATRIAL FIBRILLATION
     Dosage: UNK
     Route: 048
     Dates: start: 20080401
  6. TYLENOL #3 (UNITED STATES) [Concomitant]
     Indication: PAIN
     Dosage: UNK
     Route: 048
     Dates: start: 20110201
  7. LOPID [Concomitant]
     Indication: HYPERTRIGLYCERIDAEMIA
     Dosage: 600 MG, QD
     Route: 048
     Dates: start: 20030101
  8. ADVAIR DISKUS 100/50 [Concomitant]
     Indication: ASTHMA
     Dosage: 1 PUFF, BID
     Dates: start: 20101020
  9. XOPENEX [Concomitant]
     Indication: BRONCHOSPASM
     Dosage: UNK
     Dates: start: 20100901
  10. DOCUSATE-SENNA [Concomitant]
     Indication: CONSTIPATION
     Dosage: 50 MG, QHS
     Route: 048
     Dates: start: 20100301
  11. PRILOSEC [Concomitant]
     Indication: GASTROOESOPHAGEAL REFLUX DISEASE
     Dosage: UNK
     Route: 048
     Dates: start: 20100301
  12. PEPCID [Concomitant]
     Indication: GASTROOESOPHAGEAL REFLUX DISEASE
     Dosage: UNK
     Route: 048
     Dates: start: 20110201
  13. ISOSORBIDE MONONITRATE [Concomitant]
     Indication: PROPHYLAXIS
     Dosage: UNK
     Route: 048
     Dates: start: 20100801
  14. MIRALAX [Concomitant]
     Indication: CONSTIPATION
     Dosage: 17 G, QD
     Route: 048
     Dates: start: 20100301
  15. MULTI-VITAMIN [Concomitant]
     Indication: SUPPLEMENTATION THERAPY
     Dosage: UNK
     Route: 048
     Dates: start: 19920101
  16. CARAFATE [Concomitant]
     Indication: OESOPHAGEAL ACHALASIA
     Dosage: 1 G, TID
     Dates: start: 20101020
  17. LEVOTHYROXINE SODIUM [Concomitant]
     Indication: HYPOTHYROIDISM
     Dosage: UNK
     Route: 048
     Dates: start: 20010801
  18. CALCIUM [Concomitant]
     Indication: SUPPLEMENTATION THERAPY
     Dosage: 600 MG, BID
     Route: 048
     Dates: start: 19920101
  19. OXYGEN [Concomitant]
     Indication: ASTHMA
     Dosage: UNK
     Dates: start: 20100401
  20. ZYRTEC [Concomitant]
     Indication: RHINITIS
     Dosage: 10 MG, QID
     Route: 048
     Dates: start: 20110201

REACTIONS (8)
  - PRURITUS [None]
  - RESPIRATORY ARREST [None]
  - SWELLING FACE [None]
  - PARAESTHESIA ORAL [None]
  - LIP SWELLING [None]
  - ANAPHYLACTIC REACTION [None]
  - URTICARIA [None]
  - DYSPNOEA [None]
